FAERS Safety Report 19928585 (Version 1)
Quarter: 2021Q4

REPORT INFORMATION
  Report Type: Spontaneous
  Country: DE (occurrence: DE)
  Receive Date: 20211007
  Receipt Date: 20211007
  Transmission Date: 20220303
  Serious: Yes (Hospitalization)
  Sender: FDA-Public Use
  Company Number: DE-MYLANLABS-2021M1069112

PATIENT
  Age: 74 Year

DRUGS (3)
  1. CARBIDOPA\LEVODOPA [Interacting]
     Active Substance: CARBIDOPA\LEVODOPA
     Indication: Parkinson^s disease
     Dosage: CONTINUOUS INFUSION RATE 3.7 ML/H
  2. CARBIDOPA\LEVODOPA [Interacting]
     Active Substance: CARBIDOPA\LEVODOPA
     Dosage: UNK
  3. TOLCAPONE [Interacting]
     Active Substance: TOLCAPONE
     Indication: Parkinson^s disease
     Dosage: 100 MILLIGRAM, TID
     Route: 065

REACTIONS (5)
  - Drug interaction [Recovered/Resolved]
  - Hyperkinesia [Recovered/Resolved]
  - Dyskinesia [Recovered/Resolved]
  - Dystonia [Recovered/Resolved]
  - Off label use [Unknown]
